FAERS Safety Report 8535649-8 (Version None)
Quarter: 2012Q3

REPORT INFORMATION
  Report Type: 
  Country: None (occurrence: None)
  Receive Date: 20120725
  Receipt Date: 20120720
  Transmission Date: 20120928
  Serious: No
  Sender: FDA-Public Use
  Company Number: US-PFIZER INC-2012176512

PATIENT
  Sex: Female
  Weight: 117 kg

DRUGS (4)
  1. CELEXA [Suspect]
     Indication: DEPRESSION SUICIDAL
     Dosage: UNK
  2. PAXIL [Suspect]
     Indication: DEPRESSION SUICIDAL
     Dosage: UNK
  3. SOMA [Concomitant]
     Indication: FIBROMYALGIA
     Dosage: 350 MG, UNK
  4. ZOLOFT [Suspect]
     Indication: DEPRESSION SUICIDAL
     Dosage: UNK

REACTIONS (1)
  - DRUG INEFFECTIVE [None]
